FAERS Safety Report 25682995 (Version 1)
Quarter: 2025Q3

REPORT INFORMATION
  Report Type: Spontaneous
  Country: US (occurrence: None)
  Receive Date: 20250814
  Receipt Date: 20250814
  Transmission Date: 20251020
  Serious: No
  Sender: INCYTE
  Company Number: US-INCYTE CORPORATION-2025IN008626

PATIENT
  Age: 55 Year

DRUGS (6)
  1. OPZELURA [Suspect]
     Active Substance: RUXOLITINIB PHOSPHATE
     Indication: Alopecia
     Dosage: 1.5 PERCENT, BID
  2. OPZELURA [Suspect]
     Active Substance: RUXOLITINIB PHOSPHATE
     Indication: Alopecia
  3. OPZELURA [Suspect]
     Active Substance: RUXOLITINIB PHOSPHATE
     Indication: Alopecia
  4. MINOXIDIL [Concomitant]
     Active Substance: MINOXIDIL
     Indication: Polycystic ovarian syndrome
  5. MINOXIDIL [Concomitant]
     Active Substance: MINOXIDIL
     Indication: Alopecia
     Dosage: 2.5 MILLIGRAM, QD
  6. MINOXIDIL [Concomitant]
     Active Substance: MINOXIDIL
     Indication: Alopecia

REACTIONS (2)
  - Off label use [Unknown]
  - Drug effective for unapproved indication [Unknown]
